FAERS Safety Report 4321362-X (Version None)
Quarter: 2004Q1

REPORT INFORMATION
  Report Type: 
  Country: None (occurrence: None)
  Receive Date: 20040322
  Receipt Date: 20030326
  Transmission Date: 20041129
  Serious: No
  Sender: FDA-Public Use
  Company Number: US-BRISTOL-MYERS SQUIBB COMPANY-12228946

PATIENT
  Age: 24 Year
  Sex: Female

DRUGS (3)
  1. MONISTAT [Suspect]
     Indication: VAGINAL MYCOSIS
     Route: 067
     Dates: start: 20030325, end: 20030325
  2. ZYRTEC [Concomitant]
  3. CONTRACEPTIVE [Concomitant]
     Route: 048

REACTIONS (1)
  - VULVAL OEDEMA [None]
